FAERS Safety Report 7131209 (Version 7)
Quarter: 2013Q2

REPORT INFORMATION
  Report Type: Report from Study
  Country: ES (occurrence: ES)
  Receive Date: 20090925
  Receipt Date: 20130605
  Transmission Date: 20140414
  Serious: Yes (Other)
  Sender: FDA-Public Use
  Company Number: ES-JNJFOC-20090905945

PATIENT
  Age: 76 Year
  Sex: Male
  Weight: 98 kg

DRUGS (14)
  1. REMICADE [Suspect]
     Indication: CROHN^S DISEASE
     Route: 042
     Dates: start: 200712
  2. REMICADE [Suspect]
     Indication: CROHN^S DISEASE
     Route: 042
     Dates: start: 200712
  3. REMICADE [Suspect]
     Indication: CROHN^S DISEASE
     Route: 042
     Dates: start: 20090402
  4. REMICADE [Suspect]
     Indication: CROHN^S DISEASE
     Route: 042
     Dates: start: 20090528
  5. REMICADE [Suspect]
     Indication: CROHN^S DISEASE
     Route: 042
     Dates: start: 20090723
  6. REMICADE [Suspect]
     Indication: CROHN^S DISEASE
     Route: 042
     Dates: start: 20090212
  7. AZATHIOPRINE [Concomitant]
     Indication: CROHN^S DISEASE
     Dates: start: 20070822, end: 20071003
  8. AZATHIOPRINE [Concomitant]
     Indication: CROHN^S DISEASE
     Dates: start: 20071003, end: 20090314
  9. PENTASA [Concomitant]
     Indication: CROHN^S DISEASE
     Dates: start: 2006, end: 20070109
  10. PREDNISONE [Concomitant]
     Indication: CROHN^S DISEASE
     Dosage: DECREASING 10MG/WEEK
     Dates: start: 20070717
  11. SYMBICORT [Concomitant]
     Indication: ASTHMA
  12. SPIRIVA [Concomitant]
     Indication: ASTHMA
  13. UROLOSIN [Concomitant]
     Indication: BENIGN PROSTATIC HYPERPLASIA
  14. ADIRO [Concomitant]
     Indication: CARDIAC DISORDER

REACTIONS (1)
  - Prostate cancer recurrent [Not Recovered/Not Resolved]
